FAERS Safety Report 25720621 (Version 1)
Quarter: 2025Q3

REPORT INFORMATION
  Report Type: Spontaneous
  Country: RU (occurrence: RU)
  Receive Date: 20250825
  Receipt Date: 20250825
  Transmission Date: 20251020
  Serious: Yes (Other)
  Sender: ROCHE
  Company Number: RU-ROCHE-10000365138

PATIENT
  Sex: Female

DRUGS (8)
  1. VEMURAFENIB [Suspect]
     Active Substance: VEMURAFENIB
     Indication: Uterine cancer
     Route: 048
     Dates: start: 20230920, end: 20231010
  2. VEMURAFENIB [Suspect]
     Active Substance: VEMURAFENIB
     Route: 048
     Dates: start: 20231011, end: 20231017
  3. VEMURAFENIB [Suspect]
     Active Substance: VEMURAFENIB
     Route: 048
     Dates: start: 202406
  4. VEMURAFENIB [Suspect]
     Active Substance: VEMURAFENIB
     Route: 048
     Dates: start: 20250801
  5. COBIMETINIB [Suspect]
     Active Substance: COBIMETINIB
     Indication: Uterine cancer
     Route: 048
     Dates: start: 20230920, end: 20231010
  6. COBIMETINIB [Suspect]
     Active Substance: COBIMETINIB
     Route: 048
     Dates: start: 20250801
  7. ATEZOLIZUMAB [Suspect]
     Active Substance: ATEZOLIZUMAB
     Indication: Uterine cancer
     Route: 042
     Dates: start: 20231019
  8. ATEZOLIZUMAB [Suspect]
     Active Substance: ATEZOLIZUMAB
     Route: 042
     Dates: start: 20250801

REACTIONS (8)
  - Skin toxicity [Unknown]
  - Soft tissue mass [Unknown]
  - Schwannoma [Unknown]
  - Pulmonary fibrosis [Unknown]
  - Cholelithiasis [Unknown]
  - Rash [Unknown]
  - Aortic arteriosclerosis [Unknown]
  - Neoplasm [Unknown]
